FAERS Safety Report 20158828 (Version 1)
Quarter: 2021Q4

REPORT INFORMATION
  Report Type: Report from Study
  Country: PL (occurrence: US)
  Receive Date: 20211208
  Receipt Date: 20211208
  Transmission Date: 20220304
  Serious: Yes (Other)
  Sender: FDA-Public Use
  Company Number: PL-ABBVIE-21K-129-4156961-00

PATIENT
  Age: 60 Year
  Sex: Male
  Weight: 104 kg

DRUGS (19)
  1. VENETOCLAX [Suspect]
     Active Substance: VENETOCLAX
     Indication: Acute myeloid leukaemia refractory
     Dosage: STARTING DOSE WAS 100MG THEN INCREASED TO 400MG
     Route: 048
     Dates: start: 20210728, end: 20210801
  2. VENETOCLAX [Suspect]
     Active Substance: VENETOCLAX
     Dosage: STARTING DOSE WAS 50MG THEN INCREASED TO 400MG
     Route: 048
     Dates: start: 20210910, end: 20210930
  3. SULFAMETHOXAZOLE AND TRIMETHOPRIM [Concomitant]
     Active Substance: SULFAMETHOXAZOLE\TRIMETHOPRIM
     Indication: Prophylaxis
     Route: 048
     Dates: start: 20210723, end: 20210809
  4. SULFAMETHOXAZOLE AND TRIMETHOPRIM [Concomitant]
     Active Substance: SULFAMETHOXAZOLE\TRIMETHOPRIM
     Route: 048
     Dates: start: 20210909, end: 20211004
  5. AZACITIDINE [Concomitant]
     Active Substance: AZACITIDINE
     Indication: Acute myeloid leukaemia refractory
  6. AZACITIDINE [Concomitant]
     Active Substance: AZACITIDINE
  7. NEBIVOLOL [Concomitant]
     Active Substance: NEBIVOLOL
     Indication: Hypertension
     Route: 048
     Dates: start: 20210723, end: 20210809
  8. NEBIVOLOL [Concomitant]
     Active Substance: NEBIVOLOL
     Route: 048
     Dates: start: 20210909, end: 20211004
  9. LEVOFLOXACIN [Concomitant]
     Active Substance: LEVOFLOXACIN
     Indication: Dermatitis
     Route: 042
     Dates: start: 20211001, end: 20211004
  10. METFORMIN [Concomitant]
     Active Substance: METFORMIN HYDROCHLORIDE
     Indication: Diabetes mellitus
     Route: 048
     Dates: start: 20210723, end: 20210809
  11. METFORMIN [Concomitant]
     Active Substance: METFORMIN HYDROCHLORIDE
     Route: 048
     Dates: start: 20210909, end: 20211004
  12. PANTOPRAZOLE [Concomitant]
     Active Substance: PANTOPRAZOLE
     Indication: Gastritis
     Route: 048
     Dates: start: 20210723, end: 20210809
  13. PANTOPRAZOLE [Concomitant]
     Active Substance: PANTOPRAZOLE
     Route: 048
     Dates: start: 20210909, end: 20211004
  14. PIPERACILLIN AND TAZOBACTAM [Concomitant]
     Active Substance: PIPERACILLIN SODIUM\TAZOBACTAM SODIUM
     Indication: Infection
     Route: 042
     Dates: start: 20210801, end: 20210809
  15. ACYCLOVIR [Concomitant]
     Active Substance: ACYCLOVIR
     Indication: Prophylaxis
     Route: 048
     Dates: start: 20210723, end: 20210809
  16. ACYCLOVIR [Concomitant]
     Active Substance: ACYCLOVIR
     Route: 048
     Dates: start: 20210909, end: 20211004
  17. FLUCONAZOLE [Concomitant]
     Active Substance: FLUCONAZOLE
     Indication: Prophylaxis
     Route: 048
     Dates: start: 20210723, end: 20210809
  18. FLUCONAZOLE [Concomitant]
     Active Substance: FLUCONAZOLE
     Route: 048
     Dates: start: 20210909, end: 20211004
  19. AMIKACIN [Concomitant]
     Active Substance: AMIKACIN
     Indication: Infection
     Route: 042
     Dates: start: 20210801, end: 20210809

REACTIONS (8)
  - Septic shock [Recovered/Resolved]
  - Dermatitis [Unknown]
  - Disease progression [Recovered/Resolved]
  - Disease progression [Unknown]
  - Infection [Recovered/Resolved]
  - Off label use [Unknown]
  - Respiratory tract infection [Recovered/Resolved]
  - Localised infection [Unknown]

NARRATIVE: CASE EVENT DATE: 20210728
